FAERS Safety Report 12774494 (Version 2)
Quarter: 2016Q3

REPORT INFORMATION
  Report Type: Spontaneous
  Country: JP (occurrence: JP)
  Receive Date: 20160923
  Receipt Date: 20160928
  Transmission Date: 20161109
  Serious: Yes (Other)
  Sender: FDA-Public Use
  Company Number: PHJP2016JP026616

PATIENT
  Age: 82 Year
  Sex: Male
  Weight: 75 kg

DRUGS (3)
  1. IMATINIB [Suspect]
     Active Substance: IMATINIB
     Indication: CHRONIC MYELOID LEUKAEMIA
     Dosage: 200 MG, UNK
     Route: 048
     Dates: start: 200706
  2. OPALMON [Concomitant]
     Active Substance: LIMAPROST
     Indication: PRODUCT USED FOR UNKNOWN INDICATION
     Dosage: UNK
     Route: 065
     Dates: end: 200806
  3. IMATINIB [Suspect]
     Active Substance: IMATINIB
     Dosage: 100 MG, UNK
     Route: 048
     Dates: start: 200706, end: 201106

REACTIONS (9)
  - Peripheral arterial occlusive disease [Unknown]
  - Trichotillomania [Unknown]
  - Oedema [Unknown]
  - Intermittent claudication [Recovering/Resolving]
  - Therapy non-responder [Recovered/Resolved]
  - White blood cell count increased [Unknown]
  - Platelet count increased [Unknown]
  - Pain in extremity [Recovering/Resolving]
  - Peripheral artery stenosis [Unknown]

NARRATIVE: CASE EVENT DATE: 200706
